FAERS Safety Report 24592530 (Version 4)
Quarter: 2025Q1

REPORT INFORMATION
  Report Type: Spontaneous
  Country: US (occurrence: US)
  Receive Date: 20241108
  Receipt Date: 20250110
  Transmission Date: 20250408
  Serious: Yes (Hospitalization)
  Sender: UNITED THERAPEUTICS
  Company Number: US-UNITED THERAPEUTICS-UNT-2024-034593

PATIENT
  Sex: Female
  Weight: 65.76 kg

DRUGS (63)
  1. REMODULIN [Suspect]
     Active Substance: TREPROSTINIL
     Indication: Pulmonary arterial hypertension
  2. REMODULIN [Suspect]
     Active Substance: TREPROSTINIL
     Dates: start: 20241022, end: 20241029
  3. REMODULIN [Suspect]
     Active Substance: TREPROSTINIL
     Indication: Pulmonary arterial hypertension
  4. REMODULIN [Suspect]
     Active Substance: TREPROSTINIL
  5. REMODULIN [Suspect]
     Active Substance: TREPROSTINIL
  6. REMODULIN [Suspect]
     Active Substance: TREPROSTINIL
     Indication: Pulmonary arterial hypertension
     Route: 041
  7. REMODULIN [Suspect]
     Active Substance: TREPROSTINIL
     Route: 041
  8. REMODULIN [Suspect]
     Active Substance: TREPROSTINIL
     Route: 041
  9. DILTIAZEM [Concomitant]
     Active Substance: DILTIAZEM
     Indication: Product used for unknown indication
  10. FISH OIL [Concomitant]
     Active Substance: FISH OIL
     Indication: Product used for unknown indication
  11. VITAMINS [Concomitant]
     Active Substance: VITAMINS
     Indication: Product used for unknown indication
  12. COLACE [Concomitant]
     Active Substance: DOCUSATE SODIUM
     Indication: Product used for unknown indication
     Dosage: 100 MG IN THE MORNING AND 100 MG IN THE EVENING, BID
  13. CHOLECALCIFEROL [Concomitant]
     Active Substance: CHOLECALCIFEROL
     Indication: Product used for unknown indication
  14. KLOR-CON [Concomitant]
     Active Substance: POTASSIUM CHLORIDE
     Indication: Product used for unknown indication
  15. VENLAFAXINE HCL [Concomitant]
     Active Substance: VENLAFAXINE HYDROCHLORIDE
     Indication: Product used for unknown indication
  16. TYLENOL [Concomitant]
     Active Substance: ACETAMINOPHEN
     Indication: Pain
     Dosage: 650 MG, Q4H
  17. SODIUM CHLORIDE [Concomitant]
     Active Substance: SODIUM CHLORIDE
     Indication: Product used for unknown indication
     Route: 041
  18. SODIUM CHLORIDE [Concomitant]
     Active Substance: SODIUM CHLORIDE
     Dosage: 10 ML, BID
     Route: 041
  19. BREO ELLIPTA [Concomitant]
     Active Substance: FLUTICASONE FUROATE\VILANTEROL TRIFENATATE
     Indication: Product used for unknown indication
     Dosage: 1 PUFF INTO THE LUNGS DAILY, QD
  20. SYNTHROID [Concomitant]
     Active Substance: LEVOTHYROXINE SODIUM
     Indication: Thyroid disorder
     Dosage: 137 MCG, QD [EVERY MORNING]
  21. PROTONIX [Concomitant]
     Active Substance: PANTOPRAZOLE SODIUM
     Indication: Product used for unknown indication
     Dosage: 40 MG, QD [EVERY MORNING]
  22. MELATONIN [Concomitant]
     Active Substance: MELATONIN
     Indication: Product used for unknown indication
     Dosage: 2 TABLETS BY MOUTH NIGHTLY, QD
  23. KETAMINE HYDROCHLORIDE [Concomitant]
     Active Substance: KETAMINE HYDROCHLORIDE
     Indication: Product used for unknown indication
  24. LECITHIN [Concomitant]
     Active Substance: LECITHIN
     Indication: Product used for unknown indication
  25. ALENDRONATE SODIUM [Concomitant]
     Active Substance: ALENDRONATE SODIUM
     Indication: Product used for unknown indication
  26. ZYLOPRIM [Concomitant]
     Active Substance: ALLOPURINOL
     Indication: Gout
     Dosage: 100 MG, QD [EVERY MORNING]
  27. CALCIUM\CHOLECALCIFEROL [Concomitant]
     Active Substance: CALCIUM\CHOLECALCIFEROL
     Indication: Product used for unknown indication
  28. REVATIO [Concomitant]
     Active Substance: SILDENAFIL CITRATE
     Indication: Pulmonary arterial hypertension
     Dosage: 1 TABLET IN THE MOUTH, 1 AT NOON AND 1 IN THE EVENING, TID
  29. ALBUTEROL SULFATE [Concomitant]
     Active Substance: ALBUTEROL SULFATE
     Indication: Dyspnoea
     Dosage: 2 PUFFS INTO THE LUNGS, Q4H
  30. ALBUTEROL SULFATE [Concomitant]
     Active Substance: ALBUTEROL SULFATE
     Indication: Wheezing
  31. FOLBEE PLUS [Concomitant]
     Indication: Product used for unknown indication
  32. CLONIDINE [Concomitant]
     Active Substance: CLONIDINE
     Indication: Product used for unknown indication
  33. KETOPROFEN [Concomitant]
     Active Substance: KETOPROFEN
     Indication: Product used for unknown indication
  34. COUMADIN [Concomitant]
     Active Substance: WARFARIN SODIUM
     Indication: Atrial fibrillation
     Dosage: 3 MG, QD
  35. LIDOCAINE HYDROCHLORIDE [Concomitant]
     Active Substance: LIDOCAINE HYDROCHLORIDE
     Indication: Product used for unknown indication
  36. AMITRIPTYLINE HYDROCHLORIDE [Concomitant]
     Active Substance: AMITRIPTYLINE HYDROCHLORIDE
     Indication: Product used for unknown indication
  37. GABAPENTIN [Concomitant]
     Active Substance: GABAPENTIN
     Indication: Product used for unknown indication
  38. POLOXAMER [Concomitant]
     Active Substance: POLOXAMER
     Indication: Product used for unknown indication
  39. SPIRONOLACTONE AND HYDROCHLOROTHIAZIDE [Concomitant]
     Active Substance: HYDROCHLOROTHIAZIDE\SPIRONOLACTONE
     Indication: Product used for unknown indication
  40. DEMADEX [Concomitant]
     Active Substance: TORSEMIDE
     Indication: Right ventricular failure
     Dosage: 2 TABLETS QD
     Dates: start: 20241025
  41. COLLAGEN [Concomitant]
     Active Substance: COLLAGEN
     Indication: Product used for unknown indication
  42. UPTRAVI [Concomitant]
     Active Substance: SELEXIPAG
     Indication: Pulmonary arterial hypertension
     Dosage: 1600 MCG, Q12H
     Dates: end: 202410
  43. OXYGEN [Concomitant]
     Active Substance: OXYGEN
     Indication: Dyspnoea exertional
  44. TRIAMCINOLONE ACETONIDE [Concomitant]
     Active Substance: TRIAMCINOLONE ACETONIDE
     Indication: Product used for unknown indication
  45. MIRALAX [Concomitant]
     Active Substance: POLYETHYLENE GLYCOL 3350
     Indication: Product used for unknown indication
     Dosage: 17 GRAM BY MOUTH DAILY, STIR AND DISSOLVE POWDER IN ANY 4 TO 1 OUNCES OF BEVERAGES, THEN DRINK, QD
  46. DESYREL [Concomitant]
     Active Substance: TRAZODONE HYDROCHLORIDE
     Indication: Product used for unknown indication
     Dosage: 1 TABLET BY MOUTH NIGHTLY, QD
  47. DELTASONE [Concomitant]
     Active Substance: PREDNISONE
     Indication: Product used for unknown indication
  48. LOVENOX [Concomitant]
     Active Substance: ENOXAPARIN SODIUM
     Indication: Product used for unknown indication
     Dosage: 0.6 ML, Q12H [FOR 5 DAYS]
  49. ALDACTONE [Concomitant]
     Active Substance: SPIRONOLACTONE
     Indication: Right ventricular failure
     Dosage: 12.5 MG, QD
  50. DUONEB [Concomitant]
     Active Substance: ALBUTEROL SULFATE\IPRATROPIUM BROMIDE
     Indication: Wheezing
     Dosage: 3 ML, Q6H
  51. EFFEXOR [Concomitant]
     Active Substance: VENLAFAXINE HYDROCHLORIDE
     Indication: Product used for unknown indication
     Dosage: 75 MG, QD
  52. CARDIZEM [Concomitant]
     Active Substance: DILTIAZEM HYDROCHLORIDE
     Indication: Atrial fibrillation
  53. NITRIC OXIDE [Concomitant]
     Active Substance: NITRIC OXIDE
     Indication: Pulmonary arterial hypertension
  54. TYLENOL [Concomitant]
     Active Substance: ACETAMINOPHEN
     Indication: Pain
     Dosage: 650 MG, Q4H
  55. TYLENOL [Concomitant]
     Active Substance: ACETAMINOPHEN
     Dosage: 650 MG, Q4H
  56. SODIUM CHLORIDE [Concomitant]
     Active Substance: SODIUM CHLORIDE
     Indication: Product used for unknown indication
     Route: 041
  57. SODIUM CHLORIDE [Concomitant]
     Active Substance: SODIUM CHLORIDE
     Indication: Product used for unknown indication
     Dosage: 2 ML, BID
     Route: 041
  58. ZOFRAN [Concomitant]
     Active Substance: ONDANSETRON HYDROCHLORIDE
     Indication: Product used for unknown indication
     Dosage: 4 MG, Q6H
  59. ZOFRAN [Concomitant]
     Active Substance: ONDANSETRON HYDROCHLORIDE
     Dosage: 4 MG, Q6H
     Route: 041
  60. COUMADIN [Concomitant]
     Active Substance: WARFARIN SODIUM
     Indication: Atrial fibrillation
     Dosage: 4 MG, QD
  61. DEMADEX [Concomitant]
     Active Substance: TORSEMIDE
     Indication: Right ventricular failure
     Dosage: 40 MG, QD
  62. LEVOTHROID [Concomitant]
     Active Substance: LEVOTHYROXINE SODIUM
     Indication: Thyroid disorder
     Dosage: 137 MCG, QD [EVERY MORNING]
  63. DELTASONE [Concomitant]
     Active Substance: PREDNISONE
     Indication: Product used for unknown indication
     Dosage: 15 MG, QD

REACTIONS (22)
  - Lower limb fracture [Recovered/Resolved]
  - Device malfunction [Recovered/Resolved]
  - Device power source issue [Recovered/Resolved]
  - Infusion site erythema [Recovered/Resolved]
  - Nausea [Recovered/Resolved]
  - Headache [Unknown]
  - Dyspnoea exertional [Unknown]
  - Oedema peripheral [Unknown]
  - Anxiety [Unknown]
  - Mobility decreased [Unknown]
  - Decubitus ulcer [Unknown]
  - Infusion site pain [Unknown]
  - Decreased appetite [Unknown]
  - Blood glucose increased [Unknown]
  - Prothrombin time prolonged [Unknown]
  - Anaemia [Unknown]
  - Device alarm issue [Unknown]
  - Wrong technique in device usage process [Recovered/Resolved]
  - Wrong technique in device usage process [Unknown]
  - Device infusion issue [Unknown]
  - Device occlusion [Recovered/Resolved]
  - Product dispensing error [Recovered/Resolved]

NARRATIVE: CASE EVENT DATE: 20240101
